FAERS Safety Report 8011174-8 (Version None)
Quarter: 2011Q4

REPORT INFORMATION
  Report Type: 
  Country: None (occurrence: None)
  Receive Date: 20111228
  Receipt Date: 20111215
  Transmission Date: 20120403
  Serious: Yes (Hospitalization)
  Sender: FDA-Public Use
  Company Number: JP-WATSON-2011-19098

PATIENT
  Age: 84 Year
  Sex: Male

DRUGS (3)
  1. BLADDERON [Concomitant]
     Indication: PRODUCT USED FOR UNKNOWN INDICATION
     Dosage: 600 MG, UNK
     Route: 065
     Dates: start: 20101220
  2. RAPAFLO [Suspect]
     Indication: DYSURIA
     Dosage: 8MG DAILY
     Route: 048
     Dates: start: 20110615, end: 20110625
  3. RAPAFLO [Suspect]
     Dosage: 2 MG BID
     Route: 048
     Dates: start: 20100531, end: 20110614

REACTIONS (1)
  - LOSS OF CONSCIOUSNESS [None]
